FAERS Safety Report 24272322 (Version 1)
Quarter: 2024Q3

REPORT INFORMATION
  Report Type: Spontaneous
  Country: GB (occurrence: GB)
  Receive Date: 20240902
  Receipt Date: 20240902
  Transmission Date: 20241016
  Serious: Yes (Other)
  Sender: MSN LABORATORIES
  Company Number: GB-MHRA-TPP26181854C10068771YC1724228963844

PATIENT

DRUGS (7)
  1. ATORVASTATIN [Suspect]
     Active Substance: ATORVASTATIN
     Indication: Product used for unknown indication
     Route: 065
  2. ATORVASTATIN [Concomitant]
     Active Substance: ATORVASTATIN
     Indication: Product used for unknown indication
     Dosage: TAKE ONE DAILY AT NIGHT
     Route: 065
     Dates: start: 20240801
  3. ROSUVASTATIN [Concomitant]
     Active Substance: ROSUVASTATIN\ROSUVASTATIN CALCIUM
     Indication: Product used for unknown indication
     Dosage: USE AS DIRECTED
     Route: 065
     Dates: start: 20240821
  4. CLOBETASONE BUTYRATE [Concomitant]
     Active Substance: CLOBETASONE BUTYRATE
     Indication: Product used for unknown indication
     Dosage: APPLY THINLY TO THE AFFECTED AREA(S) ONCE OR TW...
     Route: 065
     Dates: start: 20240627, end: 20240725
  5. CLOBETASOL PROPIONATE [Concomitant]
     Active Substance: CLOBETASOL PROPIONATE
     Indication: Product used for unknown indication
     Dosage: APPLY THINLY TO THE AFFECTED AREA(S) ONCE OR TW...
     Route: 065
     Dates: start: 20240628, end: 20240726
  6. LANSOPRAZOLE [Concomitant]
     Active Substance: LANSOPRAZOLE
     Indication: Product used for unknown indication
     Dosage: TAKE ONE CAPSULE ONCE DAILY, IN THE MORNING 30-...
     Route: 065
     Dates: start: 20230913
  7. FLUOXETINE [Concomitant]
     Active Substance: FLUOXETINE HYDROCHLORIDE
     Indication: Product used for unknown indication
     Dosage: TAKE ONE CAPSULE ONCE DAILY
     Route: 065
     Dates: start: 20240521

REACTIONS (3)
  - Eye swelling [Recovering/Resolving]
  - Myalgia [Unknown]
  - Nausea [Unknown]
